FAERS Safety Report 21666322 (Version 1)
Quarter: 2022Q4

REPORT INFORMATION
  Report Type: Spontaneous
  Country: SK (occurrence: SK)
  Receive Date: 20221201
  Receipt Date: 20221201
  Transmission Date: 20230113
  Serious: Yes (Other)
  Sender: FDA-Public Use
  Company Number: SK-SA-SAC20221125000851

PATIENT
  Sex: Male

DRUGS (3)
  1. ALEMTUZUMAB [Suspect]
     Active Substance: ALEMTUZUMAB
     Indication: Relapsing-remitting multiple sclerosis
     Dosage: UNK UNK, QCY
     Dates: start: 201902, end: 202002
  2. ALEMTUZUMAB [Suspect]
     Active Substance: ALEMTUZUMAB
     Dosage: UNK UNK, QCY
     Dates: start: 202002, end: 202002
  3. COMIRNATY [Suspect]
     Active Substance: TOZINAMERAN
     Indication: COVID-19
     Dosage: UNK
     Route: 065
     Dates: start: 202104

REACTIONS (3)
  - Immune thrombocytopenia [Recovered/Resolved]
  - Condition aggravated [Recovered/Resolved]
  - Petechiae [Recovered/Resolved]

NARRATIVE: CASE EVENT DATE: 20210501
